FAERS Safety Report 10397614 (Version 1)
Quarter: 2014Q3

REPORT INFORMATION
  Report Type: Spontaneous
  Country: US (occurrence: US)
  Receive Date: 20140821
  Receipt Date: 20140821
  Transmission Date: 20150326
  Serious: Yes (Other)
  Sender: FDA-Public Use
  Company Number: PHHY2014US102479

PATIENT
  Age: 16 Year
  Sex: Female

DRUGS (11)
  1. MIDAZOLAM [Suspect]
     Active Substance: MIDAZOLAM\MIDAZOLAM HYDROCHLORIDE
     Indication: CONVULSION
     Dosage: 0.3 MG/KG, PER HOUR
     Route: 041
  2. FOSPHENYTOIN [Suspect]
     Active Substance: FOSPHENYTOIN\FOSPHENYTOIN SODIUM
     Indication: CONVULSION
     Dosage: 30 MG/KG, UNK
     Route: 042
  3. LEVETIRACETAM. [Suspect]
     Active Substance: LEVETIRACETAM
     Indication: CONVULSION
     Dosage: 40 MG/KG, UNK
     Route: 042
  4. NORMAL SALINE [Concomitant]
     Active Substance: SODIUM CHLORIDE
  5. ARGININE [Concomitant]
     Active Substance: ARGININE
     Dosage: 0.6 G/KG, PER DAY
  6. ROCURONIUM [Concomitant]
     Active Substance: ROCURONIUM BROMIDE
  7. COENZYME Q [Concomitant]
  8. PHENOBARBITAL. [Suspect]
     Active Substance: PHENOBARBITAL
     Indication: CONVULSION
     Dosage: 20 MG/KG, UNK
     Route: 042
  9. FENTANYL. [Concomitant]
     Active Substance: FENTANYL
     Dosage: 1.2 MG/KG, UNK
     Route: 042
  10. LEVOCARNITINE. [Concomitant]
     Active Substance: LEVOCARNITINE
  11. PYRIDOXINE [Concomitant]
     Active Substance: PYRIDOXINE

REACTIONS (2)
  - Haemodynamic instability [Unknown]
  - Electroencephalogram abnormal [Unknown]
